FAERS Safety Report 10922091 (Version 1)
Quarter: 2015Q1

REPORT INFORMATION
  Report Type: Spontaneous
  Country: ES (occurrence: None)
  Receive Date: 20150312
  Receipt Date: 20150312
  Transmission Date: 20150721
  Serious: Yes (Death, Other)
  Sender: FDA-Public Use
  Company Number: 2270459

PATIENT
  Age: 69 Year

DRUGS (6)
  1. OXALIPLATIN. [Suspect]
     Active Substance: OXALIPLATIN
     Indication: ADENOCARCINOMA OF COLON
     Dates: start: 201105, end: 201112
  2. RALTITREXED DISODIUM [Suspect]
     Active Substance: RALTITREXED
     Indication: ADENOCARCINOMA OF COLON
     Dates: start: 201105, end: 201112
  3. BEVACIZUMAB [Concomitant]
     Active Substance: BEVACIZUMAB
  4. IRINOTECAN HYDROCHLORIDE. [Suspect]
     Active Substance: IRINOTECAN HYDROCHLORIDE
     Indication: ADENOCARCINOMA OF COLON
     Dates: start: 201011
  5. FLUOROURACIL. [Concomitant]
     Active Substance: FLUOROURACIL
  6. FOLINIC ACID [Concomitant]
     Active Substance: LEUCOVORIN

REACTIONS (4)
  - Diarrhoea [None]
  - Disease progression [None]
  - Neurotoxicity [None]
  - Acute myocardial infarction [None]
